FAERS Safety Report 15651203 (Version 2)
Quarter: 2018Q4

REPORT INFORMATION
  Report Type: Spontaneous
  Country: US (occurrence: US)
  Receive Date: 20181123
  Receipt Date: 20181201
  Transmission Date: 20190205
  Serious: Yes (Hospitalization, Other)
  Sender: FDA-Public Use
  Company Number: US-AUROBINDO-AUR-APL-2018-055658

PATIENT
  Age: 17 Year
  Sex: Female

DRUGS (1)
  1. PARACETAMOL TABLET 500MG [Suspect]
     Active Substance: ACETAMINOPHEN
     Indication: DYSMENORRHOEA
     Dosage: 25 ACETAMINOPHEN 500 MG ; IN TOTAL
     Route: 065

REACTIONS (12)
  - Overdose [Unknown]
  - Haemolytic anaemia [Recovered/Resolved]
  - Drug-induced liver injury [Recovered/Resolved]
  - Abdominal pain [Recovered/Resolved]
  - Transaminases increased [Recovered/Resolved]
  - Blood bilirubin increased [Recovered/Resolved]
  - Ill-defined disorder [Recovered/Resolved]
  - Nausea [Recovered/Resolved]
  - Prothrombin time prolonged [Recovered/Resolved]
  - Glucose-6-phosphate dehydrogenase deficiency [Recovered/Resolved]
  - Vomiting [Recovered/Resolved]
  - International normalised ratio increased [Recovered/Resolved]
